FAERS Safety Report 10483461 (Version 1)
Quarter: 2014Q3

REPORT INFORMATION
  Report Type: Spontaneous
  Country: US (occurrence: None)
  Receive Date: 20140929
  Receipt Date: 20140929
  Transmission Date: 20150326
  Serious: Yes (Death)
  Sender: FDA-Public Use
  Company Number: None

PATIENT
  Age: 55 Year
  Sex: Male
  Weight: 74.84 kg

DRUGS (1)
  1. CELLCEPT [Suspect]
     Active Substance: MYCOPHENOLATE MOFETIL\MYCOPHENOLATE MOFETIL HYDROCHLORIDE
     Indication: IMMUNOSUPPRESSANT DRUG THERAPY
     Dosage: 1 PILL 2X A DAY, TWICE DAILY, TAKEN BY MOUTH
     Route: 048

REACTIONS (6)
  - Anxiety [None]
  - Unevaluable event [None]
  - Thinking abnormal [None]
  - Stress [None]
  - Completed suicide [None]
  - Paranoia [None]

NARRATIVE: CASE EVENT DATE: 20140803
